FAERS Safety Report 18088780 (Version 2)
Quarter: 2020Q3

REPORT INFORMATION
  Report Type: Spontaneous
  Country: US (occurrence: US)
  Receive Date: 20200729
  Receipt Date: 20200914
  Transmission Date: 20201103
  Serious: No
  Sender: FDA-Public Use
  Company Number: US-009507513-2007USA009846

PATIENT
  Age: 45 Year
  Sex: Female

DRUGS (3)
  1. NEXPLANON [Suspect]
     Active Substance: ETONOGESTREL
     Dosage: ONE ROD SUBDERMALLY EVERY 3 YEARS, RIGHT ARM
     Route: 059
     Dates: start: 20200723
  2. NEXPLANON [Suspect]
     Active Substance: ETONOGESTREL
     Dosage: ONE ROD SUBDERMALLY EVERY 3 YEARS, LEFT ARM
     Route: 059
     Dates: start: 20200722, end: 20200723
  3. NEXPLANON [Suspect]
     Active Substance: ETONOGESTREL
     Dosage: 1 DOSAGE FORM, 3 YEARS
     Dates: start: 2017, end: 20200722

REACTIONS (6)
  - Complication of device removal [Recovered/Resolved]
  - Implant site scar [Unknown]
  - Device expulsion [Recovered/Resolved]
  - Implant site fibrosis [Unknown]
  - Wrong technique in device usage process [Unknown]
  - Device issue [Recovered/Resolved]

NARRATIVE: CASE EVENT DATE: 202007
